FAERS Safety Report 11863587 (Version 1)
Quarter: 2015Q4

REPORT INFORMATION
  Report Type: Spontaneous
  Country: US (occurrence: None)
  Receive Date: 20151222
  Receipt Date: 20151222
  Transmission Date: 20160305
  Serious: Yes (Other)
  Sender: FDA-Public Use
  Company Number: None

PATIENT

DRUGS (15)
  1. LYRICALYRICA [Concomitant]
  2. ENBREL [Suspect]
     Active Substance: ETANERCEPT
     Indication: PSORIATIC ARTHROPATHY
  3. VISTARIL [Concomitant]
     Active Substance: HYDROXYZINE PAMOATE
  4. MAXALT [Concomitant]
     Active Substance: RIZATRIPTAN BENZOATE
  5. PHENERGAN [Concomitant]
     Active Substance: PROMETHAZINE HYDROCHLORIDE
  6. ZEGRID OTC [Concomitant]
     Active Substance: OMEPRAZOLE\SODIUM BICARBONATE
  7. BENADRYL [Concomitant]
     Active Substance: DIPHENHYDRAMINE HYDROCHLORIDE
  8. OTEZLA [Suspect]
     Active Substance: APREMILAST
     Indication: NAUSEA
  9. OTEZLA [Suspect]
     Active Substance: APREMILAST
     Indication: PSORIATIC ARTHROPATHY
  10. PERCOCET [Concomitant]
     Active Substance: ACETAMINOPHEN\OXYCODONE HYDROCHLORIDE
  11. GLYBURIZIDE/METFORMINE [Concomitant]
  12. STELARA [Concomitant]
     Active Substance: USTEKINUMAB
  13. CLONAZEPAM. [Concomitant]
     Active Substance: CLONAZEPAM
  14. IMODIUM [Concomitant]
     Active Substance: LOPERAMIDE HYDROCHLORIDE
  15. FLUCONIZOLE [Concomitant]

REACTIONS (1)
  - Migraine [None]
